FAERS Safety Report 17407578 (Version 1)
Quarter: 2020Q1

REPORT INFORMATION
  Report Type: Spontaneous
  Country: FR (occurrence: FR)
  Receive Date: 20200212
  Receipt Date: 20200212
  Transmission Date: 20200409
  Serious: Yes (Death, Other)
  Sender: FDA-Public Use
  Company Number: FR-AMGEN-FRASP2020020524

PATIENT

DRUGS (1)
  1. XGEVA [Suspect]
     Active Substance: DENOSUMAB
     Indication: METASTATIC NEOPLASM
     Dosage: UNK
     Route: 065

REACTIONS (9)
  - Actinomycosis [Unknown]
  - Disease recurrence [Unknown]
  - Osteonecrosis of jaw [Unknown]
  - Death [Fatal]
  - Candida infection [Unknown]
  - Staphylococcal infection [Unknown]
  - Enterobacter infection [Unknown]
  - Streptococcal infection [Unknown]
  - Bacterial infection [Unknown]
